FAERS Safety Report 24625273 (Version 4)
Quarter: 2025Q1

REPORT INFORMATION
  Report Type: Report from Study
  Country: LU (occurrence: LU)
  Receive Date: 20241115
  Receipt Date: 20250110
  Transmission Date: 20250409
  Serious: No
  Sender: BLUEPRINT MEDICINES
  Company Number: LU-Blueprint Medicines Corporation-SO-LU-2024-002348

PATIENT
  Age: 75 Year
  Sex: Male

DRUGS (5)
  1. AVAPRITINIB [Suspect]
     Active Substance: AVAPRITINIB
     Indication: Advanced systemic mastocytosis
     Route: 065
     Dates: start: 20241111
  2. AVAPRITINIB [Suspect]
     Active Substance: AVAPRITINIB
     Route: 065
     Dates: start: 20240728
  3. AVAPRITINIB [Suspect]
     Active Substance: AVAPRITINIB
     Route: 065
  4. APIXABAN [Concomitant]
     Active Substance: APIXABAN
     Indication: Product used for unknown indication
     Route: 065
  5. FEBUXOSTAT [Concomitant]
     Active Substance: FEBUXOSTAT
     Indication: Product used for unknown indication
     Route: 065

REACTIONS (17)
  - Eye oedema [Unknown]
  - Face oedema [Unknown]
  - Lacrimation increased [Unknown]
  - Decreased appetite [Unknown]
  - Dizziness [Unknown]
  - Asthenia [Unknown]
  - Fatigue [Unknown]
  - Taste disorder [Unknown]
  - Dyspnoea [Unknown]
  - Abdominal pain [Unknown]
  - Abdominal rigidity [Unknown]
  - Malaise [Unknown]
  - Memory impairment [Unknown]
  - Hair colour changes [Unknown]
  - Dysphonia [Unknown]
  - Oedema peripheral [Unknown]
  - Off label use [Unknown]
